FAERS Safety Report 9481128 (Version 2)
Quarter: 2013Q3

REPORT INFORMATION
  Report Type: Spontaneous
  Country: US (occurrence: US)
  Receive Date: 20130828
  Receipt Date: 20130919
  Transmission Date: 20140515
  Serious: Yes (Hospitalization)
  Sender: FDA-Public Use
  Company Number: US-BIOGENIDEC-2013BI078435

PATIENT
  Age: 37 Year
  Sex: Female

DRUGS (1)
  1. TYSABRI [Suspect]
     Indication: MULTIPLE SCLEROSIS
     Route: 042
     Dates: start: 20100810, end: 20130415

REACTIONS (6)
  - Gallbladder disorder [Recovered/Resolved]
  - Post procedural haemorrhage [Recovered/Resolved]
  - Post procedural complication [Recovered/Resolved]
  - Multiple sclerosis [Recovered/Resolved]
  - Stress [Recovered/Resolved]
  - Pain [Not Recovered/Not Resolved]
